FAERS Safety Report 11103016 (Version 1)
Quarter: 2015Q2

REPORT INFORMATION
  Report Type: Spontaneous
  Country: CA (occurrence: None)
  Receive Date: 20150507
  Receipt Date: 20150507
  Transmission Date: 20150821
  Serious: Yes (Death)
  Sender: FDA-Public Use
  Company Number: 2845766

PATIENT
  Age: 25 Year
  Sex: Male

DRUGS (8)
  1. DACARBAZINE. [Suspect]
     Active Substance: DACARBAZINE
     Indication: CHORIOCARCINOMA
  2. ADRIAMYCIN [Suspect]
     Active Substance: DOXORUBICIN HYDROCHLORIDE
     Indication: CHORIOCARCINOMA
  3. PREDNISONE. [Suspect]
     Active Substance: PREDNISONE
     Indication: CHORIOCARCINOMA
     Route: 048
  4. NITROGEN MUSTARD [Suspect]
     Active Substance: MECHLORETHAMINE OXIDE HYDROCHLORIDE
     Indication: CHORIOCARCINOMA
  5. BLEOMYCIN SULFATE [Suspect]
     Active Substance: BLEOMYCIN SULFATE
     Indication: CHORIOCARCINOMA
  6. ONCOVIN [Suspect]
     Active Substance: VINCRISTINE SULFATE
     Indication: CHORIOCARCINOMA
  7. VINBLASTINE SULFATE. [Suspect]
     Active Substance: VINBLASTINE SULFATE
     Indication: CHORIOCARCINOMA
  8. MATULANE [Suspect]
     Active Substance: PROCARBAZINE HYDROCHLORIDE
     Indication: CHORIOCARCINOMA

REACTIONS (3)
  - Disease progression [None]
  - Respiratory failure [None]
  - Choriocarcinoma [None]
